FAERS Safety Report 12167145 (Version 1)
Quarter: 2016Q1

REPORT INFORMATION
  Report Type: Spontaneous
  Country: US (occurrence: None)
  Receive Date: 20160309
  Receipt Date: 20160309
  Transmission Date: 20160526
  Serious: Yes (Other)
  Sender: FDA-Public Use
  Company Number: None

PATIENT
  Age: 34 Year
  Sex: Male

DRUGS (1)
  1. GILENYA [Suspect]
     Active Substance: FINGOLIMOD HYDROCHLORIDE
     Indication: MULTIPLE SCLEROSIS
     Dosage: GILENYA STRENGTH: 0.5 ORAL?1 PO DAILY TO 1 PO DAILY FOR 6 DAYS A WEEK
     Route: 048
     Dates: start: 201404

REACTIONS (2)
  - Therapy change [None]
  - Laboratory test abnormal [None]

NARRATIVE: CASE EVENT DATE: 20160301
